FAERS Safety Report 15136738 (Version 1)
Quarter: 2018Q3

REPORT INFORMATION
  Report Type: Report from Study
  Country: US (occurrence: US)
  Receive Date: 20180712
  Receipt Date: 20180712
  Transmission Date: 20181010
  Serious: Yes (Other)
  Sender: FDA-Public Use
  Company Number: US-TEVA-2018-US-921836

PATIENT
  Age: 7 Year
  Sex: Male

DRUGS (2)
  1. IBUPROFEN. [Suspect]
     Active Substance: IBUPROFEN
     Route: 065
  2. TOBI [Suspect]
     Active Substance: TOBRAMYCIN
     Dosage: INHALATION (14.3 MG/KG)
     Route: 050

REACTIONS (2)
  - Acute kidney injury [Unknown]
  - Off label use [Unknown]
